FAERS Safety Report 24027548 (Version 1)
Quarter: 2024Q2

REPORT INFORMATION
  Report Type: Spontaneous
  Country: US (occurrence: US)
  Receive Date: 20240628
  Receipt Date: 20240628
  Transmission Date: 20240717
  Serious: Yes (Life-Threatening, Hospitalization, Other)
  Sender: FDA-Public Use
  Company Number: None

PATIENT
  Age: 66 Year
  Sex: Male

DRUGS (3)
  1. HEPARIN [Suspect]
     Active Substance: HEPARIN SODIUM
     Indication: Electrocardiogram ST segment depression
  2. FUROSEMIDE [Concomitant]
     Active Substance: FUROSEMIDE
     Indication: Heart failure with reduced ejection fraction
  3. APIXABAN [Concomitant]
     Active Substance: APIXABAN
     Indication: Atrial fibrillation

REACTIONS (3)
  - Azotaemia [Unknown]
  - Arterial haemorrhage [Recovered/Resolved]
  - Pulmonary haematoma [Recovering/Resolving]
